FAERS Safety Report 9030992 (Version 1)
Quarter: 2013Q1

REPORT INFORMATION
  Report Type: Spontaneous
  Country: CH (occurrence: CH)
  Receive Date: 20130123
  Receipt Date: 20130123
  Transmission Date: 20140127
  Serious: Yes (Hospitalization)
  Sender: FDA-Public Use
  Company Number: PHHY2013CH005820

PATIENT
  Age: 89 Year
  Sex: Female
  Weight: 49 kg

DRUGS (6)
  1. EXFORGE [Suspect]
     Indication: ESSENTIAL HYPERTENSION
     Route: 048
  2. ZOLPIDEM [Suspect]
     Indication: INSOMNIA
     Route: 048
  3. CITALOPRAM [Suspect]
     Indication: ANXIETY DISORDER
     Dosage: UNK
     Route: 048
     Dates: end: 20121212
  4. SYMFONA [Concomitant]
     Dates: end: 20121220
  5. ALLOPURINOL [Concomitant]
  6. CALCITRIOL [Concomitant]

REACTIONS (7)
  - Hyponatraemia [Unknown]
  - Hypokalaemia [Unknown]
  - Confusional state [Unknown]
  - General physical health deterioration [Unknown]
  - Fall [Unknown]
  - Vomiting [Unknown]
  - Diarrhoea [Unknown]
